FAERS Safety Report 15206465 (Version 1)
Quarter: 2018Q3

REPORT INFORMATION
  Report Type: Spontaneous
  Country: US (occurrence: US)
  Receive Date: 20180628
  Receipt Date: 20180628
  Transmission Date: 20181010
  Serious: Yes (Disabling)
  Sender: FDA-Public Use
  Company Number: None

PATIENT
  Age: 84 Year
  Sex: Male

DRUGS (6)
  1. CARVEDILOL. [Concomitant]
     Active Substance: CARVEDILOL
  2. COQ10 [Concomitant]
     Active Substance: UBIDECARENONE
  3. ATOVASTATIN [Concomitant]
     Active Substance: ATORVASTATIN
  4. MAGNESIUM [Concomitant]
     Active Substance: MAGNESIUM
  5. WARFARIN [Concomitant]
     Active Substance: WARFARIN
  6. ELIQUIS [Suspect]
     Active Substance: APIXABAN
     Indication: ARRHYTHMIA
     Dates: start: 20151019, end: 20170104

REACTIONS (2)
  - Eye haemorrhage [None]
  - Blindness [None]

NARRATIVE: CASE EVENT DATE: 201611
